FAERS Safety Report 5141971-8 (Version None)
Quarter: 2006Q4

REPORT INFORMATION
  Report Type: 
  Country: None (occurrence: None)
  Receive Date: 20061102
  Receipt Date: 20060929
  Transmission Date: 20070319
  Serious: Yes (Life-Threatening, Hospitalization)
  Sender: FDA-Public Use
  Company Number: FR-BOEHRINGER INGELHEIM PHARMACEUTICALS, INC.-2006-FF-00981FF

PATIENT
  Sex: Male
  Weight: 55 kg

DRUGS (8)
  1. VIRAMUNE [Suspect]
     Indication: HIV INFECTION
     Route: 048
     Dates: start: 20060629, end: 20060728
  2. VIRAMUNE [Suspect]
     Route: 048
     Dates: start: 20060715, end: 20060728
  3. TRUVADA [Suspect]
     Indication: HIV INFECTION
     Route: 048
     Dates: start: 20060615, end: 20060728
  4. DARUNAVIR [Suspect]
     Indication: HIV INFECTION
     Route: 048
     Dates: start: 20060615, end: 20060728
  5. DEPAKENE [Concomitant]
     Indication: EPILEPSY
     Route: 048
     Dates: start: 20000101
  6. LAMICTAL [Concomitant]
     Indication: EPILEPSY
     Route: 048
     Dates: start: 20020101
  7. SUBUTEX [Concomitant]
     Indication: DRUG DEPENDENCE
     Route: 048
     Dates: start: 19960101
  8. NORVIR [Concomitant]
     Indication: HIV INFECTION
     Route: 048
     Dates: start: 20060615, end: 20060728

REACTIONS (7)
  - HYPERSENSITIVITY [None]
  - ONYCHOLYSIS [None]
  - ORAL CANDIDIASIS [None]
  - PRURITUS [None]
  - RASH [None]
  - STAPHYLOCOCCAL INFECTION [None]
  - STEVENS-JOHNSON SYNDROME [None]
